FAERS Safety Report 7876816-6 (Version None)
Quarter: 2011Q4

REPORT INFORMATION
  Report Type: 
  Country: None (occurrence: None)
  Receive Date: 20111031
  Receipt Date: 20111021
  Transmission Date: 20120403
  Serious: Yes (Life-Threatening, Hospitalization)
  Sender: FDA-Public Use
  Company Number: JP-ASTRAZENECA-2011SE56245

PATIENT
  Age: 16874 Day
  Sex: Male
  Weight: 63.7 kg

DRUGS (14)
  1. ZYPREXA [Suspect]
     Indication: SCHIZOPHRENIA
     Route: 048
     Dates: end: 20110905
  2. DEPROMEL [Concomitant]
     Indication: SCHIZOPHRENIA
     Dates: end: 20110913
  3. ALLOPURINOL [Concomitant]
     Indication: GOUT
     Dates: end: 20110912
  4. SEROQUEL [Suspect]
     Indication: SCHIZOPHRENIA
     Route: 048
     Dates: end: 20110905
  5. SEROQUEL [Suspect]
     Route: 048
     Dates: start: 20110906, end: 20110912
  6. SELBEX [Concomitant]
     Indication: GASTRIC ULCER
     Dates: end: 20110913
  7. ARTANE [Concomitant]
     Indication: PARKINSONISM
     Dates: end: 20110913
  8. PROMAZINE HYDROCHLORIDE [Concomitant]
     Indication: SCHIZOPHRENIA
     Dates: end: 20110912
  9. ZYPREXA [Suspect]
     Route: 048
     Dates: start: 20110906, end: 20110912
  10. LEXOTAN [Concomitant]
     Indication: SCHIZOPHRENIA
     Dates: end: 20110913
  11. ROHYPNOL [Concomitant]
     Indication: SCHIZOPHRENIA
     Dates: end: 20110913
  12. HYPNOTICS AND SEDATIVES [Concomitant]
     Dates: end: 20110913
  13. PROMETHAZINE HCL [Concomitant]
     Indication: PARKINSONISM
     Dates: end: 20110913
  14. RISPERDAL [Concomitant]
     Indication: SCHIZOPHRENIA
     Dates: end: 20110906

REACTIONS (3)
  - AGRANULOCYTOSIS [None]
  - ENTEROBACTER SEPSIS [None]
  - DISSEMINATED INTRAVASCULAR COAGULATION [None]
